FAERS Safety Report 6304475-2 (Version None)
Quarter: 2009Q3

REPORT INFORMATION
  Report Type: 
  Country: None (occurrence: None)
  Receive Date: 20090811
  Receipt Date: 20090806
  Transmission Date: 20100115
  Serious: No
  Sender: FDA-Public Use
  Company Number: US-B.I. PHARMACEUTICALS,INC./RIDGEFIELD-2009-BP-09268BP

PATIENT
  Sex: Male

DRUGS (8)
  1. FLOMAX [Suspect]
     Indication: URINE FLOW DECREASED
     Dosage: 0.4 MG
     Route: 048
     Dates: start: 20070101, end: 20070101
  2. ATENOLOL [Concomitant]
  3. DIPAGNOXYLAGE-ATROP [Concomitant]
     Indication: BLOOD CHOLESTEROL INCREASED
  4. THEOPHYLLINE [Concomitant]
     Indication: HYPERTENSION
  5. LOVASTATIN [Concomitant]
     Indication: BLOOD CHOLESTEROL INCREASED
  6. LISINOPRIL [Concomitant]
     Indication: HYPERTENSION
  7. AMLODIPINE [Concomitant]
     Indication: HYPERTENSION
  8. NAPROXEN [Concomitant]
     Indication: ARTHRITIS

REACTIONS (1)
  - DYSURIA [None]
